FAERS Safety Report 10240983 (Version 1)
Quarter: 2014Q1

REPORT INFORMATION
  Report Type: Spontaneous
  Country: US (occurrence: None)
  Receive Date: 20140306
  Receipt Date: 20140306
  Transmission Date: 20141002
  Serious: Yes (Hospitalization)
  Sender: FDA-Public Use
  Company Number: 163-21880-13123065

PATIENT
  Age: 61 Year
  Sex: Male
  Weight: 86.2 kg

DRUGS (6)
  1. REVLIMID (LENALIDOMIDE) (10 MILLIGRAM, CAPSULES) [Suspect]
     Indication: PLASMA CELL MYELOMA
     Route: 048
     Dates: start: 200810
  2. MULTIVITAMINS (MULTIVITAMINS) [Concomitant]
  3. VITAMIN B 12 (VITAMIN B 12) [Concomitant]
  4. LISINOPRIL (LISINOPRIL) [Concomitant]
  5. NEXIUM (ESOMEPRAZOLE) [Concomitant]
  6. COUMADIN (WARFARIN SODIUM) [Concomitant]

REACTIONS (1)
  - Thrombosis [None]
